FAERS Safety Report 6578234-X (Version None)
Quarter: 2010Q1

REPORT INFORMATION
  Report Type: 
  Country: None (occurrence: None)
  Receive Date: 20100211
  Receipt Date: 20100209
  Transmission Date: 20100710
  Serious: Yes (Death, Hospitalization)
  Sender: FDA-Public Use
  Company Number: A0823487A

PATIENT
  Age: 60 Year
  Sex: Female

DRUGS (12)
  1. VALTREX [Suspect]
     Indication: INFECTION
     Dosage: 500MG TWICE PER DAY
     Route: 048
     Dates: start: 20090801, end: 20091110
  2. ZOFRAN [Suspect]
     Indication: NAUSEA
     Dosage: 8MG TWICE PER DAY
     Route: 048
     Dates: start: 20090801, end: 20091110
  3. ZOFRAN [Suspect]
     Indication: DRUG USE FOR UNKNOWN INDICATION
     Route: 065
  4. HYDREA [Concomitant]
  5. LEVOFLOXACIN [Concomitant]
  6. SORAFENIB [Concomitant]
  7. VALACYCLOVIR [Concomitant]
  8. ZOLPIDEM [Concomitant]
  9. CARVEDILOL [Concomitant]
  10. EFFEXOR [Concomitant]
  11. VFEND [Concomitant]
  12. DIABETES MEDICATION [Concomitant]

REACTIONS (2)
  - ADVERSE EVENT [None]
  - LEUKAEMIA [None]
